FAERS Safety Report 25378273 (Version 1)
Quarter: 2025Q2

REPORT INFORMATION
  Report Type: Spontaneous
  Country: FR (occurrence: FR)
  Receive Date: 20250530
  Receipt Date: 20250530
  Transmission Date: 20250717
  Serious: Yes (Death, Life-Threatening, Hospitalization)
  Sender: MACLEODS
  Company Number: FR-MLMSERVICE-20250513-PI504747-00217-1

PATIENT

DRUGS (2)
  1. METFORMIN [Suspect]
     Active Substance: METFORMIN HYDROCHLORIDE
     Indication: Diabetes mellitus
     Route: 048
  2. BICTEGRAVIR\EMTRICITABINE\TENOFOVIR ALAFENAMIDE [Suspect]
     Active Substance: BICTEGRAVIR\EMTRICITABINE\TENOFOVIR ALAFENAMIDE
     Indication: HIV infection
     Route: 048

REACTIONS (12)
  - Acute kidney injury [Fatal]
  - Ischaemic hepatitis [Fatal]
  - Hepatic cytolysis [Fatal]
  - Disseminated intravascular coagulation [Fatal]
  - Acute respiratory failure [Fatal]
  - Lactic acidosis [Fatal]
  - Shock [Fatal]
  - Acute hepatic failure [Fatal]
  - Toxicity to various agents [Fatal]
  - Toxicity to various agents [Fatal]
  - Drug interaction [Fatal]
  - Intentional overdose [Fatal]
